FAERS Safety Report 23193277 (Version 1)
Quarter: 2023Q4

REPORT INFORMATION
  Report Type: Spontaneous
  Country: US (occurrence: None)
  Receive Date: 20231116
  Receipt Date: 20231116
  Transmission Date: 20240109
  Serious: Yes (Life-Threatening, Hospitalization)
  Sender: FDA-Public Use
  Company Number: None

PATIENT
  Age: 3 Year
  Sex: Male
  Weight: 16.9 kg

DRUGS (2)
  1. CALASPARGASE PEGOL [Suspect]
     Active Substance: CALASPARGASE PEGOL
     Indication: Acute lymphocytic leukaemia
     Dosage: OTHER FREQUENCY : ONCE;?
     Route: 040
     Dates: start: 20231006, end: 20231006
  2. CALASPARGASE PEGOL [Concomitant]
     Active Substance: CALASPARGASE PEGOL

REACTIONS (3)
  - Anaphylactic reaction [None]
  - Vomiting [None]
  - Oxygen saturation decreased [None]

NARRATIVE: CASE EVENT DATE: 20231006
